FAERS Safety Report 7795207-X (Version None)
Quarter: 2011Q4

REPORT INFORMATION
  Report Type: 
  Country: None (occurrence: None)
  Receive Date: 20111004
  Receipt Date: 20110921
  Transmission Date: 20120403
  Serious: Yes (Hospitalization, Disabling)
  Sender: FDA-Public Use
  Company Number: JP-UCBSA-041430

PATIENT
  Sex: Male

DRUGS (19)
  1. VALPROIC ACID [Suspect]
     Dosage: 400 MG
  2. HOKUNALIN [Concomitant]
     Dosage: 1 DF
     Route: 061
  3. MEPTIN [Concomitant]
     Route: 055
  4. INTAL [Concomitant]
     Dosage: 3 AMPOULE
     Route: 055
  5. KEPPRA [Suspect]
     Indication: EPILEPSY
     Dosage: 20 MG/KG
     Dates: start: 20110510, end: 20110824
  6. DIAZEPAM [Suspect]
     Dosage: 0.5 MG
  7. ARTANE [Concomitant]
     Dosage: 1 MG
  8. TRICLORYL [Concomitant]
     Dosage: 600 MG
  9. DIAMOX SRC [Concomitant]
     Dosage: 100 MG
  10. MUCODYNE DS [Concomitant]
     Dosage: 500 MG
  11. PULSMARIN A [Concomitant]
     Dosage: 14 MG
  12. PHENOBARBITAL TAB [Suspect]
     Dosage: 20 MG
  13. ASVERIN [Concomitant]
     Dosage: 30 MG
  14. ALFAROL [Concomitant]
     Dosage: 0.5 MCG
  15. DANTRIUM [Concomitant]
     Dosage: 10 MG
  16. TIZANIDINE HCL [Concomitant]
     Dosage: 1 MG
  17. ONON [Concomitant]
     Dosage: 110 MG
  18. CAFFEINE [Concomitant]
     Dosage: 0.05 G
  19. INCREMIN [Concomitant]
     Dosage: 60 MG

REACTIONS (5)
  - GASTROINTESTINAL HAEMORRHAGE [None]
  - WRONG TECHNIQUE IN DRUG USAGE PROCESS [None]
  - HYPOXIC-ISCHAEMIC ENCEPHALOPATHY [None]
  - CARDIO-RESPIRATORY ARREST [None]
  - ANAEMIA [None]
